FAERS Safety Report 4778986-5 (Version None)
Quarter: 2005Q3

REPORT INFORMATION
  Report Type: 
  Country: None (occurrence: None)
  Receive Date: 20050914
  Receipt Date: 20050518
  Transmission Date: 20060218
  Serious: Yes (Other)
  Sender: FDA-Public Use
  Company Number: 405351

PATIENT
  Age: 89 Year
  Sex: Female

DRUGS (2)
  1. BONIVA [Suspect]
     Indication: DRUG USE FOR UNKNOWN INDICATION
     Dosage: ORAL
     Route: 048
     Dates: start: 20050517
  2. HEART MEDICATION NOS (CARDIAC MEDICATION NOS) [Concomitant]

REACTIONS (11)
  - ANOREXIA [None]
  - ARTHRALGIA [None]
  - BACK PAIN [None]
  - CHROMATOPSIA [None]
  - HEADACHE [None]
  - HYPERHIDROSIS [None]
  - MYALGIA [None]
  - OSTEOPOROSIS [None]
  - VISION BLURRED [None]
  - VISUAL DISTURBANCE [None]
  - VITREOUS FLOATERS [None]
